FAERS Safety Report 17650536 (Version 1)
Quarter: 2020Q2

REPORT INFORMATION
  Report Type: Spontaneous
  Country: US (occurrence: US)
  Receive Date: 20200408
  Receipt Date: 20200408
  Transmission Date: 20200713
  Serious: No
  Sender: FDA-Public Use
  Company Number: None

PATIENT
  Age: 63 Year
  Sex: Male
  Weight: 57 kg

DRUGS (2)
  1. NOVOLOG MIX 70/30 [Suspect]
     Active Substance: INSULIN ASPART
     Route: 058
     Dates: start: 20190210
  2. INSULIN (INSULIN ASPART, HUMAN 100 UNT/ML INJ) [Suspect]
     Active Substance: INSULIN ASPART
     Indication: DIABETES MELLITUS
     Route: 058
     Dates: start: 20190210

REACTIONS (3)
  - Refusal of treatment by patient [None]
  - Hypoglycaemia [None]
  - Dizziness [None]

NARRATIVE: CASE EVENT DATE: 20200306
